FAERS Safety Report 16635202 (Version 1)
Quarter: 2019Q3

REPORT INFORMATION
  Report Type: Spontaneous
  Country: DK (occurrence: DK)
  Receive Date: 20190726
  Receipt Date: 20190726
  Transmission Date: 20191004
  Serious: Yes (Life-Threatening, Hospitalization, Other)
  Sender: FDA-Public Use
  Company Number: DK-BRISTOL-MYERS SQUIBB COMPANY-BMS-2019-071552

PATIENT
  Age: 70 Year
  Sex: Male
  Weight: 90 kg

DRUGS (2)
  1. CITALOPRAM [Concomitant]
     Active Substance: CITALOPRAM HYDROBROMIDE
     Indication: ANXIETY
     Dosage: 20 MILLIGRAM, QD
     Route: 048
     Dates: start: 20190306
  2. ELIQUIS [Suspect]
     Active Substance: APIXABAN
     Indication: THROMBOSIS PROPHYLAXIS
     Dosage: 10 MILLIGRAM, DAILY
     Route: 048
     Dates: start: 20170525, end: 20190709

REACTIONS (5)
  - Haemorrhage [Recovered/Resolved]
  - Prescribed overdose [Unknown]
  - Shock [Unknown]
  - Haemoglobin decreased [Unknown]
  - Intentional product use issue [Unknown]

NARRATIVE: CASE EVENT DATE: 20190706
